FAERS Safety Report 5517525-8 (Version None)
Quarter: 2007Q4

REPORT INFORMATION
  Report Type: 
  Country: None (occurrence: None)
  Receive Date: 20071114
  Receipt Date: 20071102
  Transmission Date: 20080405
  Serious: Yes (Hospitalization, Other)
  Sender: FDA-Public Use
  Company Number: US-PFIZER INC-2007068582

PATIENT
  Sex: Female
  Weight: 63.636 kg

DRUGS (2)
  1. CHANTIX [Suspect]
     Indication: SMOKING CESSATION THERAPY
     Route: 048
     Dates: start: 20070801, end: 20070801
  2. ATIVAN [Concomitant]

REACTIONS (15)
  - BLOOD PRESSURE INCREASED [None]
  - BODY TEMPERATURE INCREASED [None]
  - CHEST PAIN [None]
  - CONSTIPATION [None]
  - DYSPNOEA [None]
  - FLATULENCE [None]
  - JOINT SWELLING [None]
  - MUSCLE SPASMS [None]
  - PAIN [None]
  - PULMONARY CONGESTION [None]
  - RHINORRHOEA [None]
  - SALIVARY HYPERSECRETION [None]
  - SINUS ARRHYTHMIA [None]
  - SYNOVITIS [None]
  - UNEVALUABLE EVENT [None]
